FAERS Safety Report 19681221 (Version 1)
Quarter: 2021Q3

REPORT INFORMATION
  Report Type: Spontaneous
  Country: US (occurrence: US)
  Receive Date: 20210810
  Receipt Date: 20210810
  Transmission Date: 20211014
  Serious: Yes (Hospitalization)
  Sender: FDA-Public Use
  Company Number: US-IGSA-SR10008876

PATIENT
  Age: 71 Year
  Sex: Female

DRUGS (7)
  1. GAMMAKED [Suspect]
     Active Substance: HUMAN IMMUNOGLOBULIN G
     Indication: INTENSIVE CARE UNIT ACQUIRED WEAKNESS
     Dosage: 30 G, Q.3WK.
     Route: 042
     Dates: start: 20190702, end: 20190703
  2. CITALOPRAM HYDROBROMIDE. [Concomitant]
     Active Substance: CITALOPRAM HYDROBROMIDE
  3. GAMMAKED [Suspect]
     Active Substance: HUMAN IMMUNOGLOBULIN G
     Dosage: 60 G, Q.3WK.
     Route: 042
     Dates: start: 20180611, end: 20190702
  4. BUPROPION. [Concomitant]
     Active Substance: BUPROPION
  5. METFORMIN [Concomitant]
     Active Substance: METFORMIN HYDROCHLORIDE
  6. CLINDAMYCIN. [Concomitant]
     Active Substance: CLINDAMYCIN
  7. GAMMAKED [Suspect]
     Active Substance: HUMAN IMMUNOGLOBULIN G
     Dosage: 30 G, Q.3WK.
     Route: 042
     Dates: start: 20190702, end: 20190703

REACTIONS (2)
  - Pulmonary embolism [Unknown]
  - Chest pain [Unknown]

NARRATIVE: CASE EVENT DATE: 20190725
